FAERS Safety Report 24621588 (Version 1)
Quarter: 2024Q4

REPORT INFORMATION
  Report Type: Spontaneous
  Country: US (occurrence: US)
  Receive Date: 20241114
  Receipt Date: 20241114
  Transmission Date: 20250114
  Serious: No
  Sender: SANOFI AVENTIS
  Company Number: US-SA-2024SA319162

PATIENT
  Age: 60 Year
  Sex: Male

DRUGS (1)
  1. DUPIXENT [Suspect]
     Active Substance: DUPILUMAB
     Indication: Eczema infantile
     Dosage: 300 MG, QOW
     Route: 058
     Dates: start: 202403

REACTIONS (3)
  - Eczema infantile [Unknown]
  - Condition aggravated [Unknown]
  - Lactose intolerance [Unknown]

NARRATIVE: CASE EVENT DATE: 20240901
